FAERS Safety Report 5874307-5 (Version None)
Quarter: 2008Q3

REPORT INFORMATION
  Report Type: 
  Country: None (occurrence: None)
  Receive Date: 20080908
  Receipt Date: 20080828
  Transmission Date: 20090109
  Serious: Yes (Other)
  Sender: FDA-Public Use
  Company Number: US-TYCO HEALTHCARE/MALLINCKRODT-T200801414

PATIENT

DRUGS (22)
  1. OPTIMARK [Suspect]
     Indication: NUCLEAR MAGNETIC RESONANCE IMAGING BRAIN
     Dosage: UNK, SINGLE
     Route: 042
     Dates: start: 20050827, end: 20050827
  2. OPTIMARK [Suspect]
     Indication: NUCLEAR MAGNETIC RESONANCE IMAGING
     Dosage: UNK, SINGLE
     Route: 042
     Dates: start: 20060208, end: 20060208
  3. OPTIMARK [Suspect]
     Dosage: UNK, SINGLE
     Route: 042
     Dates: start: 20060315, end: 20060315
  4. GADOLINIUM [Suspect]
     Indication: NUCLEAR MAGNETIC RESONANCE IMAGING
     Dosage: WITH AND WITHOUT CONTRAST
     Dates: start: 20070523, end: 20070523
  5. AMBIEN [Concomitant]
     Indication: INSOMNIA
     Dosage: 10 MG, QD
  6. ATIVAN [Concomitant]
     Indication: ANXIETY
     Dosage: .5 MG, PRN
  7. CELEBREX [Concomitant]
     Indication: ARTHRITIS
     Dosage: 100 MG, QD
  8. ASPIRIN [Concomitant]
     Indication: ARTHRITIS
     Dosage: 81 MG, QD
  9. NEPHROCAPS [Concomitant]
     Indication: VITAMIN SUPPLEMENTATION
     Dosage: ONE PER DAY
  10. RENAGEL                            /01459901/ [Concomitant]
     Indication: RENAL DISORDER
     Dosage: 40 MG, BID
  11. MIDODRINE [Concomitant]
     Indication: HYPERTENSION
     Dosage: 20 MG, BID
  12. RESTASIS [Concomitant]
     Indication: DRY EYE
     Dosage: 4/DAY
  13. REQUIP [Concomitant]
     Indication: RESTLESS LEGS SYNDROME
     Dosage: 1 MG, QD
  14. NEURONTIN [Concomitant]
     Indication: PAIN
     Dosage: 100 MG, QD
  15. RENVELA [Concomitant]
     Indication: BLOOD PHOSPHORUS
     Dosage: 6/DAY
  16. PHOSLO [Concomitant]
     Indication: BLOOD PHOSPHORUS
     Dosage: 15/DAY
  17. IMITREX [Concomitant]
     Indication: MIGRAINE
     Dosage: UNK, 1 PRN
  18. THERA TEARS [Concomitant]
     Indication: DRY EYE
     Dosage: UNK, BID (2/DAY)
  19. SYSTANE [Concomitant]
     Indication: DRY EYE
     Dosage: EVERY FEW HOURS
  20. PROTONIX                           /01263201/ [Concomitant]
     Indication: GASTROOESOPHAGEAL REFLUX DISEASE
     Dosage: 40 MG, QD
  21. EPOGEN [Concomitant]
     Indication: DIALYSIS
     Dosage: UNK,AS NEEDED PRN
  22. IRON [Concomitant]
     Indication: DIALYSIS
     Dosage: UNK,AS NEEDED PRN

REACTIONS (1)
  - NEPHROGENIC SYSTEMIC FIBROSIS [None]
